FAERS Safety Report 5036399-5 (Version None)
Quarter: 2006Q2

REPORT INFORMATION
  Report Type: 
  Country: None (occurrence: None)
  Receive Date: 20060601
  Receipt Date: 20060412
  Transmission Date: 20061013
  Serious: No
  Sender: FDA-Public Use
  Company Number: US200604002118

PATIENT
  Age: 74 Year
  Sex: Male

DRUGS (6)
  1. CYMBALTA [Suspect]
     Dosage: SEE IMAGE
     Dates: start: 20060301
  2. CYMBALTA [Suspect]
     Dosage: SEE IMAGE
     Dates: start: 20060301
  3. VITAMINS [Concomitant]
  4. LAXATIVES [Concomitant]
  5. SENNA (SENNA) [Concomitant]
  6. AVODART /USA/(DUTASTERIDE) [Concomitant]

REACTIONS (8)
  - AMNESIA [None]
  - BACK PAIN [None]
  - BLOOD PRESSURE FLUCTUATION [None]
  - CONSTIPATION [None]
  - DIZZINESS [None]
  - HEADACHE [None]
  - PRURITUS [None]
  - RASH [None]
